FAERS Safety Report 7129535-8 (Version None)
Quarter: 2010Q4

REPORT INFORMATION
  Report Type: 
  Country: None (occurrence: None)
  Receive Date: 20101130
  Receipt Date: 20101119
  Transmission Date: 20110411
  Serious: Yes (Death)
  Sender: FDA-Public Use
  Company Number: US-TYCO HEALTHCARE/MALLINCKRODT-T201002327

PATIENT
  Age: 35 Year
  Sex: Male

DRUGS (1)
  1. MD-GASTROVIEW [Suspect]
     Indication: COMPUTERISED TOMOGRAM
     Dosage: 10 ML, SINGLE
     Route: 054
     Dates: start: 20101116, end: 20101116

REACTIONS (2)
  - CARDIAC ARREST [None]
  - RASH [None]
